FAERS Safety Report 25948927 (Version 2)
Quarter: 2025Q4

REPORT INFORMATION
  Report Type: Spontaneous
  Country: EU (occurrence: EU)
  Receive Date: 20251022
  Receipt Date: 20251117
  Transmission Date: 20260117
  Serious: Yes (Other)
  Sender: PFIZER
  Company Number: EU-PFIZER INC-PV202500123239

PATIENT
  Age: 72 Year
  Sex: Male

DRUGS (5)
  1. TALAZOPARIB [Suspect]
     Active Substance: TALAZOPARIB
     Dosage: 0.5 MG, 1X/DAY
     Dates: start: 20250821
  2. ENZALUTAMIDE [Suspect]
     Active Substance: ENZALUTAMIDE
     Dosage: UNK
     Dates: start: 202504
  3. DENOSUMAB [Suspect]
     Active Substance: DENOSUMAB
     Dosage: EVERY 4 WEEKS
  4. GONADORELIN DIACETATE TETRAHYDRATE [Concomitant]
     Active Substance: GONADORELIN DIACETATE TETRAHYDRATE
     Dosage: UNK
     Dates: start: 202503
  5. BICALUTAMIDE [Concomitant]
     Active Substance: BICALUTAMIDE
     Dosage: UNK
     Dates: start: 202503

REACTIONS (3)
  - Disease progression [Recovering/Resolving]
  - Pancytopenia [Recovering/Resolving]
  - Anaemia [Recovering/Resolving]

NARRATIVE: CASE EVENT DATE: 20250821
